FAERS Safety Report 8854220 (Version 1)
Quarter: 2012Q4

REPORT INFORMATION
  Report Type: Spontaneous
  Country: US (occurrence: None)
  Receive Date: 20121019
  Receipt Date: 20121019
  Transmission Date: 20130627
  Serious: Yes (Other)
  Sender: FDA-Public Use
  Company Number: None

PATIENT
  Age: 65 Year
  Sex: Male
  Weight: 90.7 kg

DRUGS (1)
  1. NIMODIPINE [Suspect]
     Indication: SUBARACHNOID HEMORRHAGE
     Route: 048

REACTIONS (6)
  - Medication error [None]
  - Blood pressure decreased [None]
  - Bradycardia [None]
  - Nodal rhythm [None]
  - Drug dispensing error [None]
  - Injury associated with device [None]
